FAERS Safety Report 11993839 (Version 2)
Quarter: 2017Q1

REPORT INFORMATION
  Report Type: Spontaneous
  Country: JP (occurrence: JP)
  Receive Date: 20160203
  Receipt Date: 20170116
  Transmission Date: 20170428
  Serious: Yes (Death, Other)
  Sender: FDA-Public Use
  Company Number: JP-ASTRAZENECA-2016SE10975

PATIENT
  Age: 549 Month
  Sex: Female
  Weight: 36.4 kg

DRUGS (27)
  1. LASIX [Concomitant]
     Active Substance: FUROSEMIDE
  2. URSO [Concomitant]
     Active Substance: URSODIOL
  3. ALDACTONE A [Concomitant]
     Active Substance: SPIRONOLACTONE
  4. TAKEPRON OD [Concomitant]
     Active Substance: LANSOPRAZOLE
  5. PANTOL [Concomitant]
     Active Substance: DEXPANTHENOL
  6. KIDMIN [Concomitant]
     Active Substance: AMINO ACIDS\ELECTROLYTES NOS
  7. ALDREB [Concomitant]
  8. MEROPEN [Suspect]
     Active Substance: MEROPENEM
     Indication: CHOLECYSTITIS
     Route: 041
  9. TYGACIL [Suspect]
     Active Substance: TIGECYCLINE
     Indication: CHOLECYSTITIS
     Route: 041
     Dates: end: 20151214
  10. DAIKENCHUTO [Concomitant]
     Active Substance: HERBALS
  11. VITAJECT B [Concomitant]
  12. HUMULIN R [Concomitant]
     Active Substance: INSULIN HUMAN
  13. PRECEDEX [Concomitant]
     Active Substance: DEXMEDETOMIDINE HYDROCHLORIDE
  14. ONOACT [Concomitant]
     Active Substance: LANDIOLOL HYDROCHLORIDE
  15. AZTREONAM. [Suspect]
     Active Substance: AZTREONAM
     Indication: CHOLECYSTITIS
     Route: 041
     Dates: start: 20151216
  16. HICALIQ [Concomitant]
     Active Substance: CALCIUM GLUCONATE\DEXTROSE\MAGNESIUM SULFATE\POTASSIUM ACETATE\POTASSIUM PHOSPHATE, DIBASIC\ZINC SULFATE
  17. FENTANYL. [Concomitant]
     Active Substance: FENTANYL
  18. NEUART [Concomitant]
     Active Substance: ANTITHROMBIN III HUMAN
  19. SODIUM PHOSPHATE [Concomitant]
     Active Substance: SODIUM PHOSPHATE
  20. BOSMIN [Concomitant]
     Active Substance: EPINEPHRINE
  21. INOVAN [Concomitant]
     Active Substance: DOPAMINE HYDROCHLORIDE
  22. TYGACIL [Suspect]
     Active Substance: TIGECYCLINE
     Indication: CHOLECYSTITIS
     Route: 041
     Dates: start: 20151215, end: 20151215
  23. MUCODYNE [Concomitant]
     Active Substance: CARBOCYSTEINE
  24. MUCOSAL [Concomitant]
  25. COLISTIN SODIUM METHANESULFONATE [Suspect]
     Active Substance: COLISTIN A SODIUM METHANESULFONATE
     Indication: CHOLECYSTITIS
     Route: 041
     Dates: end: 20151216
  26. WARFARIN [Concomitant]
     Active Substance: WARFARIN
  27. TEPRENONE [Concomitant]
     Active Substance: TEPRENONE

REACTIONS (4)
  - Condition aggravated [Fatal]
  - Drug ineffective [Unknown]
  - Off label use [Unknown]
  - Post procedural complication [Fatal]

NARRATIVE: CASE EVENT DATE: 201512
